FAERS Safety Report 8854307 (Version 1)
Quarter: 2012Q4

REPORT INFORMATION
  Report Type: 
  Country: ES (occurrence: ES)
  Receive Date: 20121023
  Receipt Date: 20121023
  Transmission Date: 20130627
  Serious: Yes (Hospitalization)
  Sender: FDA-Public Use
  Company Number: ES-PFIZER INC-2012260219

PATIENT
  Age: 81 Year
  Sex: Female

DRUGS (6)
  1. TAZOCEL [Suspect]
     Indication: RESPIRATORY TRACT INFECTION
     Dosage: 4 g, 4x/day
     Route: 042
     Dates: start: 20120429, end: 20120502
  2. ZYVOXID [Suspect]
     Indication: RESPIRATORY TRACT INFECTION
     Dosage: 600 mg, 2x/day
     Route: 042
     Dates: start: 20120429, end: 20120502
  3. COLISTIMETHATE SODIUM [Suspect]
     Dosage: 2 millionIU, 2x/day
     Route: 042
     Dates: start: 20120502, end: 20120514
  4. DIPRIVAN [Concomitant]
     Indication: SEDATION
  5. PANTOPRAZOLE [Concomitant]
     Indication: PROPHYLAXIS AGAINST GASTROINTESTINAL ULCER
     Dosage: 40 mg, 1x/day
     Route: 042
     Dates: start: 20120416
  6. PARACETAMOL [Concomitant]
     Indication: PAIN
     Dosage: 2 g, 2x/day
     Route: 042
     Dates: start: 20120416

REACTIONS (1)
  - Renal failure acute [Unknown]
